FAERS Safety Report 5461103-6 (Version None)
Quarter: 2007Q3

REPORT INFORMATION
  Report Type: 
  Country: None (occurrence: None)
  Receive Date: 20070920
  Receipt Date: 20070914
  Transmission Date: 20080115
  Serious: Yes (Hospitalization, Other)
  Sender: FDA-Public Use
  Company Number: PHRM2007FR02204

PATIENT
  Age: 42 Year
  Sex: Female

DRUGS (6)
  1. RIVOTRIL [Concomitant]
     Dosage: 3 MG/DAY
     Route: 048
  2. IMOVANE [Concomitant]
     Dosage: 1 DF, QD
     Route: 048
  3. STABLON [Concomitant]
     Indication: DEPRESSION
     Dosage: 4 DF/DAY
     Route: 048
  4. LASIX [Suspect]
     Indication: HYPERTENSION
     Dosage: 40 MG, QD
     Route: 048
     Dates: start: 20070531, end: 20070805
  5. NISIS [Suspect]
     Indication: HYPERTENSION
     Dosage: 160 MG, QD
     Route: 048
     Dates: start: 20070531, end: 20070806
  6. IBUPROFEN [Concomitant]
     Indication: MIGRAINE
     Dosage: UNK, PRN

REACTIONS (6)
  - PRURITUS [None]
  - PSORIASIS [None]
  - RENAL FAILURE [None]
  - SEPSIS [None]
  - SKIN LESION [None]
  - URINARY TRACT INFECTION [None]
